FAERS Safety Report 23200637 (Version 3)
Quarter: 2023Q4

REPORT INFORMATION
  Report Type: Spontaneous
  Country: US (occurrence: US)
  Receive Date: 20231118
  Receipt Date: 20231130
  Transmission Date: 20240109
  Serious: Yes (Other)
  Sender: FDA-Public Use
  Company Number: US-ABBVIE-5497536

PATIENT
  Sex: Female
  Weight: 82.553 kg

DRUGS (9)
  1. SKYRIZI [Suspect]
     Active Substance: RISANKIZUMAB-RZAA
     Indication: Psoriasis
     Dosage: FORM STRENGTH 15 MILLIGRAM
     Route: 058
     Dates: start: 202310
  2. SKYRIZI [Suspect]
     Active Substance: RISANKIZUMAB-RZAA
     Dosage: TIME INTERVAL: TOTAL: SECOND DOSE?FORM STRENGTH 15 MILLIGRAM
     Route: 058
     Dates: start: 202307, end: 202307
  3. SKYRIZI [Suspect]
     Active Substance: RISANKIZUMAB-RZAA
     Dosage: TIME INTERVAL: TOTAL: FIRST DOSE?FROM STRENGTH: 150 MILLIGRAM
     Route: 058
     Dates: start: 202306, end: 202306
  4. ASPIRIN [Concomitant]
     Active Substance: ASPIRIN
     Indication: Anticoagulant therapy
     Dosage: LOW DOSE?FREQUENCY TEXT: EVERY NIGHT
     Route: 065
  5. COVID-19 VACCINE NOS [Suspect]
     Active Substance: COVID-19 VACCINE NOS
     Indication: COVID-19 immunisation
     Route: 030
     Dates: start: 20231011
  6. TRIAMTERENE [Concomitant]
     Active Substance: TRIAMTERENE
     Indication: Hypertension
     Dosage: FREQUENCY TEXT: EVERY NIGHT
     Route: 065
  7. TRAZODONE HCL [Concomitant]
     Active Substance: TRAZODONE HYDROCHLORIDE
     Indication: Sleep disorder therapy
     Dosage: 50 MILLIGRAM
     Route: 065
  8. GABAPENTIN [Concomitant]
     Active Substance: GABAPENTIN
     Indication: Pain
     Route: 065
  9. ARMOUR THYROID [Concomitant]
     Active Substance: THYROID, PORCINE
     Indication: Autoimmune thyroiditis
     Route: 065

REACTIONS (18)
  - Waldenstrom^s macroglobulinaemia [Unknown]
  - Arthralgia [Not Recovered/Not Resolved]
  - Illness [Recovered/Resolved]
  - Injection site mass [Not Recovered/Not Resolved]
  - Swelling [Unknown]
  - Injection site bruising [Not Recovered/Not Resolved]
  - Muscular weakness [Unknown]
  - Herpes zoster [Recovered/Resolved]
  - Herpes zoster [Recovering/Resolving]
  - Influenza [Recovered/Resolved]
  - Immunodeficiency [Unknown]
  - Haematological malignancy [Unknown]
  - Antiphospholipid antibodies positive [Unknown]
  - Back pain [Unknown]
  - Arthralgia [Unknown]
  - Pain [Recovering/Resolving]
  - Pain [Unknown]
  - Peripheral swelling [Unknown]

NARRATIVE: CASE EVENT DATE: 20230101
